FAERS Safety Report 13122263 (Version 3)
Quarter: 2017Q1

REPORT INFORMATION
  Report Type: Spontaneous
  Country: US (occurrence: US)
  Receive Date: 20170117
  Receipt Date: 20170313
  Transmission Date: 20170428
  Serious: Yes (Death, Other)
  Sender: FDA-Public Use
  Company Number: US-PFIZER INC-2017016279

PATIENT
  Age: 64 Year
  Sex: Male
  Weight: 59.86 kg

DRUGS (2)
  1. XALKORI [Suspect]
     Active Substance: CRIZOTINIB
     Indication: LUNG CANCER METASTATIC
     Dosage: 250 MG, 2X/DAY
     Route: 048
     Dates: start: 20160109
  2. XALKORI [Suspect]
     Active Substance: CRIZOTINIB
     Dosage: 250 MG, 2X/DAY
     Route: 048
     Dates: end: 201703

REACTIONS (5)
  - Fatigue [Unknown]
  - Death [Fatal]
  - Nausea [Unknown]
  - Haemoglobin decreased [Unknown]
  - Vomiting [Unknown]

NARRATIVE: CASE EVENT DATE: 201701
